FAERS Safety Report 12080975 (Version 1)
Quarter: 2016Q1

REPORT INFORMATION
  Report Type: Spontaneous
  Country: US (occurrence: US)
  Receive Date: 20160216
  Receipt Date: 20160216
  Transmission Date: 20160526
  Serious: Yes (Death)
  Sender: FDA-Public Use
  Company Number: US-INSYS THERAPEUTICS, INC-INS201602-000071

PATIENT
  Age: 72 Year
  Sex: Female
  Weight: 46.26 kg

DRUGS (3)
  1. OXYCODONE [Concomitant]
     Active Substance: OXYCODONE
  2. SUBSYS [Suspect]
     Active Substance: FENTANYL
     Indication: NEOPLASM MALIGNANT
  3. DILAUDID [Concomitant]
     Active Substance: HYDROMORPHONE HYDROCHLORIDE

REACTIONS (2)
  - Thinking abnormal [Unknown]
  - Neoplasm progression [Fatal]

NARRATIVE: CASE EVENT DATE: 201411
